FAERS Safety Report 10340336 (Version 1)
Quarter: 2014Q3

REPORT INFORMATION
  Report Type: Spontaneous
  Country: DE (occurrence: DE)
  Receive Date: 20140724
  Receipt Date: 20140724
  Transmission Date: 20150326
  Serious: Yes (Other)
  Sender: FDA-Public Use
  Company Number: DE-INCYTE CORPORATION-2014IN002069

PATIENT
  Sex: Male

DRUGS (7)
  1. JAKAFI [Suspect]
     Active Substance: RUXOLITINIB
     Indication: GRAFT VERSUS HOST DISEASE
     Dosage: 5 MG, TWICE DAILY
     Route: 065
  2. JAKAFI [Suspect]
     Active Substance: RUXOLITINIB
     Indication: OFF LABEL USE
     Dosage: 10 MG, TWICE DAILY
     Route: 065
  3. TRAMAL [Concomitant]
     Active Substance: TRAMADOL
     Dosage: UNK
  4. CERTICAN [Concomitant]
     Active Substance: EVEROLIMUS
     Dosage: UNK
     Dates: start: 201307
  5. COTRIM D.S. [Concomitant]
     Active Substance: SULFAMETHOXAZOLE\TRIMETHOPRIM
     Dosage: UNK
  6. ACICLOVIR [Concomitant]
     Active Substance: ACYCLOVIR
     Dosage: UNK
  7. LYRICA [Concomitant]
     Active Substance: PREGABALIN
     Dosage: UNK

REACTIONS (3)
  - Abdominal distension [Unknown]
  - Drug withdrawal syndrome [Unknown]
  - Headache [Unknown]
